FAERS Safety Report 9838874 (Version 2)
Quarter: 2014Q1

REPORT INFORMATION
  Report Type: Spontaneous
  Country: GB (occurrence: None)
  Receive Date: 20140116
  Receipt Date: 20140129
  Transmission Date: 20141002
  Serious: Yes (Other)
  Sender: FDA-Public Use
  Company Number: SYM-2014-14778

PATIENT
  Age: 28 Year
  Sex: Female

DRUGS (6)
  1. ALL TRANS RETINOIC ACID [Suspect]
     Indication: ACUTE PROMYELOCYTIC LEUKAEMIA
     Dosage: 45 MG/M2, DAILY IN TWO DIVIDED DOSES
  2. ACICLOVIR [Suspect]
     Indication: PROPHYLAXIS
  3. IDARUBICIN [Suspect]
     Indication: ACUTE PROMYELOCYTIC LEUKAEMIA
  4. ALLOPURINOL [Suspect]
     Indication: PROPHYLAXIS
  5. ITRACONAZOLE [Suspect]
  6. PIPERACILLIN/TAZOBACTAM [Suspect]
     Indication: FEBRILE NEUTROPENIA

REACTIONS (7)
  - Nodal arrhythmia [None]
  - Dyspnoea [None]
  - Haemoptysis [None]
  - Pyrexia [None]
  - Oxygen saturation decreased [None]
  - Sinus tachycardia [None]
  - Lung infiltration [None]
